FAERS Safety Report 5242928-9 (Version None)
Quarter: 2007Q1

REPORT INFORMATION
  Report Type: 
  Country: None (occurrence: None)
  Receive Date: 20070215
  Receipt Date: 20070130
  Transmission Date: 20070707
  Serious: Yes (Hospitalization)
  Sender: FDA-Public Use
  Company Number: 2006SP004044

PATIENT
  Age: 71 Year
  Sex: Male
  Weight: 53.978 kg

DRUGS (11)
  1. XOPENEX [Suspect]
     Indication: CHRONIC OBSTRUCTIVE PULMONARY DISEASE
     Dosage: ; INHALATION
     Route: 055
     Dates: start: 20060801
  2. THEOPHYLLINE [Concomitant]
  3. ALBUTEROL [Concomitant]
  4. ATROVENT [Concomitant]
  5. PREDNISONE [Concomitant]
  6. PULMICORT [Concomitant]
  7. TAMSULOSIN HCL [Concomitant]
  8. ALBUTEROL W/IPRATROPIUM [Concomitant]
  9. GUAIFENESIN [Concomitant]
  10. MAALOX/ LICOCAINE/BENADRYL [Concomitant]
  11. BIAXIN [Concomitant]

REACTIONS (13)
  - BRAIN NATRIURETIC PEPTIDE ABNORMAL [None]
  - BULLOUS LUNG DISEASE [None]
  - CARDIAC FAILURE CONGESTIVE [None]
  - CARDIOMEGALY [None]
  - CHRONIC OBSTRUCTIVE PULMONARY DISEASE [None]
  - CONDITION AGGRAVATED [None]
  - ELECTROCARDIOGRAM POOR R-WAVE PROGRESSION [None]
  - ELECTROCARDIOGRAM T WAVE INVERSION [None]
  - MYOCARDIAL ISCHAEMIA [None]
  - SCOLIOSIS [None]
  - SINUS TACHYCARDIA [None]
  - VENTRICULAR DYSFUNCTION [None]
  - WEIGHT INCREASED [None]
